FAERS Safety Report 8781303 (Version 1)
Quarter: 2012Q4

REPORT INFORMATION
  Report Type: Report from Study
  Country: GB (occurrence: GB)
  Receive Date: 20120913
  Receipt Date: 20120913
  Transmission Date: 20130627
  Serious: Yes (Hospitalization)
  Sender: FDA-Public Use
  Company Number: GB-ROCHE-1123854

PATIENT
  Sex: Female
  Weight: 63 kg

DRUGS (3)
  1. ROACTEMRA [Suspect]
     Indication: RHEUMATOID ARTHRITIS
     Dosage: last dose taken prior to SAE 09/Dec/2011
     Route: 065
     Dates: start: 20110707
  2. HYDROXYCHLOROQUINE [Concomitant]
  3. ASPIRIN [Concomitant]
     Route: 065

REACTIONS (1)
  - VIIth nerve paralysis [Unknown]
